FAERS Safety Report 24242413 (Version 1)
Quarter: 2024Q3

REPORT INFORMATION
  Report Type: Spontaneous
  Country: US (occurrence: None)
  Receive Date: 20240822
  Receipt Date: 20240822
  Transmission Date: 20241016
  Serious: No
  Sender: Public
  Company Number: None

PATIENT
  Sex: 0

DRUGS (1)
  1. BUPROPION [Suspect]
     Active Substance: BUPROPION

REACTIONS (7)
  - Drug ineffective [None]
  - Insomnia [None]
  - Psychomotor hyperactivity [None]
  - Hyperhidrosis [None]
  - Psychomotor hyperactivity [None]
  - Anxiety [None]
  - Affective disorder [None]
